FAERS Safety Report 4925442-7 (Version None)
Quarter: 2006Q1

REPORT INFORMATION
  Report Type: 
  Country: None (occurrence: None)
  Receive Date: 20060228
  Receipt Date: 20050222
  Transmission Date: 20060701
  Serious: No
  Sender: FDA-Public Use
  Company Number: US-GLAXOSMITHKLINE-A0546727A

PATIENT
  Age: 64 Year
  Sex: Male
  Weight: 90 kg

DRUGS (4)
  1. LAMICTAL [Suspect]
     Indication: BIPOLAR DISORDER
     Dosage: 150MG PER DAY
     Route: 048
  2. NEURONTIN [Concomitant]
     Indication: BIPOLAR DISORDER
     Dosage: 600MG AT NIGHT
  3. TOPICAL CREAM [Concomitant]
     Route: 061
  4. VIAGRA [Concomitant]

REACTIONS (6)
  - BURNING SENSATION [None]
  - ERECTILE DYSFUNCTION [None]
  - HYPOAESTHESIA [None]
  - PARAESTHESIA [None]
  - RASH [None]
  - SENSORY LOSS [None]
